FAERS Safety Report 7718826-5 (Version None)
Quarter: 2011Q3

REPORT INFORMATION
  Report Type: 
  Country: None (occurrence: None)
  Receive Date: 20110830
  Receipt Date: 20110825
  Transmission Date: 20111222
  Serious: Yes (Hospitalization, Disabling)
  Sender: FDA-Public Use
  Company Number: US-AMGEN-USACT2011019512

PATIENT
  Age: 74 Year
  Sex: Female

DRUGS (18)
  1. ATIVAN [Concomitant]
  2. PRILOSEC [Concomitant]
     Dosage: 20 MG, UNK
  3. FLUTICASONE PROPIONATE [Concomitant]
     Dosage: 50 MUG, PRN
     Route: 055
  4. HYDRALAZINE HCL [Concomitant]
     Dosage: 10 MG, Q6H
  5. SENOKOT [Concomitant]
  6. FERROUS SULFATE TAB [Concomitant]
     Dosage: 27 MG, QD
  7. XGEVA [Suspect]
     Indication: OSTEOPOROSIS POSTMENOPAUSAL
     Dosage: 60 MG, Q6MO
     Route: 058
     Dates: start: 20061206, end: 20100614
  8. VITAMIN D [Concomitant]
     Dosage: 400 IU, QD
  9. SPIRIVA [Concomitant]
     Dosage: 18 MUG, QD
  10. CHANTIX [Concomitant]
     Dosage: 0.5 MG, BID
  11. VITAMIN B COMPLEX CAP [Concomitant]
  12. OSCAL [Concomitant]
     Dosage: 1000 MG, QD
  13. ESTER C [Concomitant]
     Dosage: 500 MG, QD
  14. CHERATUSSIN AC [Concomitant]
     Dosage: UNK UNK, PRN
  15. LISINOPRIL [Concomitant]
     Dosage: 10 MG, BID
     Dates: start: 20110301
  16. DIFLUCAN [Concomitant]
  17. ALLEGRA [Concomitant]
     Dosage: 180 MG, QD
  18. PERCOCET [Concomitant]
     Dosage: 325 MG, PRN
     Route: 048

REACTIONS (2)
  - THORACIC VERTEBRAL FRACTURE [None]
  - SPINAL COMPRESSION FRACTURE [None]
